FAERS Safety Report 6187004-6 (Version None)
Quarter: 2009Q2

REPORT INFORMATION
  Report Type: 
  Country: None (occurrence: None)
  Receive Date: 20090508
  Receipt Date: 20090420
  Transmission Date: 20091009
  Serious: Yes (Death)
  Sender: FDA-Public Use
  Company Number: ADE# 09-088DPR

PATIENT
  Age: 90 Year
  Sex: Female

DRUGS (5)
  1. DIGOXIN [Suspect]
     Indication: CARDIOMYOPATHY
     Dosage: ONCE A DAY
     Dates: start: 20081001
  2. ACTOS [Concomitant]
  3. CARVEDILOL [Concomitant]
  4. OTHER UNKNOWN MEDICATIONS [Concomitant]
  5. FUROSEMIDE [Concomitant]

REACTIONS (13)
  - ABASIA [None]
  - CARDIAC DISORDER [None]
  - CONFUSIONAL STATE [None]
  - DYSSTASIA [None]
  - FAECAL INCONTINENCE [None]
  - FATIGUE [None]
  - FLUID INTAKE REDUCED [None]
  - HYPOPHAGIA [None]
  - OEDEMA [None]
  - PRODUCT SUBSTITUTION ISSUE [None]
  - SOCIAL AVOIDANT BEHAVIOUR [None]
  - THERAPEUTIC AGENT TOXICITY [None]
  - TREMOR [None]
